FAERS Safety Report 8474039-3 (Version None)
Quarter: 2012Q2

REPORT INFORMATION
  Report Type: 
  Country: None (occurrence: None)
  Receive Date: 20120628
  Receipt Date: 20120420
  Transmission Date: 20120825
  Serious: Yes (Death)
  Sender: FDA-Public Use
  Company Number: US-MYLANLABS-2012S1008147

PATIENT
  Age: 65 Year
  Sex: Female

DRUGS (5)
  1. BENZTROPINE MESYLATE [Concomitant]
  2. CLOZAPINE [Suspect]
     Dosage: 100MG QAM, 300MG HS
     Route: 048
     Dates: end: 20120401
  3. HALOPERIDOL [Concomitant]
  4. INSULIN [Concomitant]
  5. ALENDRONATE SODIUM [Concomitant]

REACTIONS (1)
  - DEATH [None]
